FAERS Safety Report 14702810 (Version 4)
Quarter: 2018Q2

REPORT INFORMATION
  Report Type: Report from Study
  Country: US (occurrence: US)
  Receive Date: 20180402
  Receipt Date: 20180612
  Transmission Date: 20180711
  Serious: Yes (Hospitalization)
  Sender: FDA-Public Use
  Company Number: US-SUN PHARMACEUTICAL INDUSTRIES LTD-2018US-167889

PATIENT
  Age: 52 Year
  Sex: Male
  Weight: 110.6 kg

DRUGS (22)
  1. AMLODIPINE [Suspect]
     Active Substance: AMLODIPINE BESYLATE
     Indication: HYPERTENSION
     Dosage: 5 MG, QD
     Route: 048
     Dates: start: 1997
  2. BENAZEPRIL [Suspect]
     Active Substance: BENAZEPRIL HYDROCHLORIDE
     Indication: HYPERTENSION
     Dosage: 10 MG, QD
     Route: 048
     Dates: start: 1997
  3. BLINDED TILDRAKIZUMAB 100 MG/ML INJECTION [Suspect]
     Active Substance: TILDRAKIZUMAB
     Indication: PSORIATIC ARTHROPATHY
     Dosage: UNK
     Route: 058
     Dates: start: 20170825, end: 20170825
  4. BLINDED TILDRAKIZUMAB INJECTION [Suspect]
     Active Substance: TILDRAKIZUMAB
     Indication: PSORIATIC ARTHROPATHY
     Dosage: UNK
     Route: 058
     Dates: start: 20170825, end: 20170825
  5. BLINDED TILDRAKIZUMAB INJECTION [Suspect]
     Active Substance: TILDRAKIZUMAB
     Dosage: UNK
     Route: 058
     Dates: start: 20171019, end: 20171019
  6. HYDROCHLOROTHIAZIDE. [Suspect]
     Active Substance: HYDROCHLOROTHIAZIDE
     Indication: HYPERTENSION
     Dosage: 25 MG, QD
     Route: 048
     Dates: start: 2009
  7. LOVAZA [Concomitant]
     Active Substance: OMEGA-3-ACID ETHYL ESTERS
     Indication: HYPERLIPIDAEMIA
     Dosage: 1 G, QID
     Route: 048
     Dates: start: 2002, end: 20180227
  8. PLACEBO [Suspect]
     Active Substance: UNSPECIFIED INGREDIENT
     Indication: PSORIATIC ARTHROPATHY
     Dosage: UNK
     Route: 058
     Dates: start: 20170825, end: 20170825
  9. PLACEBO [Suspect]
     Active Substance: UNSPECIFIED INGREDIENT
     Dosage: UNK
     Route: 058
     Dates: start: 20170922, end: 20170922
  10. CELEBREX [Concomitant]
     Active Substance: CELECOXIB
     Indication: PROSTATIC SPECIFIC ANTIGEN
     Dosage: 200 MG, BID (PRN)
     Route: 048
     Dates: start: 1996
  11. VIAGRA [Concomitant]
     Active Substance: SILDENAFIL CITRATE
     Indication: ERECTILE DYSFUNCTION
     Dosage: 100 MG, PRN
     Route: 048
     Dates: start: 2017
  12. LOVAZA [Concomitant]
     Active Substance: OMEGA-3-ACID ETHYL ESTERS
     Indication: HYPERLIPIDAEMIA
     Dosage: 1 G, BID
     Route: 048
     Dates: start: 20180228
  13. PRAVASTATIN SODIUM. [Concomitant]
     Active Substance: PRAVASTATIN SODIUM
     Indication: HIGH DENSITY LIPOPROTEIN DECREASED
  14. BLINDED TILDRAKIZUMAB 100 MG/ML INJECTION [Suspect]
     Active Substance: TILDRAKIZUMAB
     Dosage: UNK
     Route: 058
     Dates: start: 20170922, end: 20170922
  15. BLINDED TILDRAKIZUMAB 20 MG/ML INJECTION [Suspect]
     Active Substance: TILDRAKIZUMAB
     Dosage: UNK
     Route: 058
     Dates: start: 20170922, end: 20170922
  16. PLACEBO [Suspect]
     Active Substance: UNSPECIFIED INGREDIENT
     Dosage: UNK
     Route: 058
     Dates: start: 20171019, end: 20171019
  17. PRAVASTATIN SODIUM. [Concomitant]
     Active Substance: PRAVASTATIN SODIUM
     Indication: HYPERLIPIDAEMIA
     Dosage: 80 MG, QD
     Route: 048
     Dates: start: 1993
  18. BLINDED TILDRAKIZUMAB INJECTION [Suspect]
     Active Substance: TILDRAKIZUMAB
     Dosage: UNK
     Route: 058
     Dates: start: 20170922, end: 20170922
  19. BAYER ASPIRIN [Concomitant]
     Active Substance: ASPIRIN
     Indication: CARDIOVASCULAR EVENT PROPHYLAXIS
     Dosage: 81 MG, QD
     Route: 048
     Dates: start: 1997
  20. BLINDED TILDRAKIZUMAB 20 MG/ML INJECTION [Suspect]
     Active Substance: TILDRAKIZUMAB
     Indication: PSORIATIC ARTHROPATHY
     Dosage: UNK
     Route: 058
     Dates: start: 20170825, end: 20170825
  21. BLINDED TILDRAKIZUMAB 100 MG/ML INJECTION [Suspect]
     Active Substance: TILDRAKIZUMAB
     Dosage: UNK
     Route: 058
     Dates: start: 20171019, end: 20171019
  22. BLINDED TILDRAKIZUMAB 20 MG/ML INJECTION [Suspect]
     Active Substance: TILDRAKIZUMAB
     Dosage: UNK
     Route: 058
     Dates: start: 20171019, end: 20171019

REACTIONS (2)
  - Syncope [Recovered/Resolved]
  - Hypokalaemia [Recovered/Resolved]

NARRATIVE: CASE EVENT DATE: 20171111
